FAERS Safety Report 7637999-6 (Version None)
Quarter: 2011Q3

REPORT INFORMATION
  Report Type: 
  Country: None (occurrence: None)
  Receive Date: 20110727
  Receipt Date: 20110713
  Transmission Date: 20111222
  Serious: Yes (Other)
  Sender: FDA-Public Use
  Company Number: US-ELI_LILLY_AND_COMPANY-US201102002409

PATIENT
  Age: 61 Year
  Sex: Female

DRUGS (3)
  1. NEUROTIN                           /00949202/ [Concomitant]
  2. COUMADIN [Concomitant]
  3. FORTEO [Suspect]
     Indication: OSTEOPOROSIS
     Dosage: 20 UG, UNKNOWN
     Route: 065
     Dates: start: 20110101, end: 20110101

REACTIONS (10)
  - OEDEMA PERIPHERAL [None]
  - PAIN IN EXTREMITY [None]
  - THROMBOSIS [None]
  - ERYTHEMA [None]
  - INTENTIONAL DRUG MISUSE [None]
  - MYOCARDIAL INFARCTION [None]
  - BONE PAIN [None]
  - WEIGHT DECREASED [None]
  - MUSCLE SPASMS [None]
  - DYSPNOEA [None]
